FAERS Safety Report 24679797 (Version 3)
Quarter: 2025Q1

REPORT INFORMATION
  Report Type: Other
  Country: US (occurrence: US)
  Receive Date: 20241129
  Receipt Date: 20250118
  Transmission Date: 20250409
  Serious: Yes (Other)
  Sender: TRAVERE THERAPEUTICS
  Company Number: US-TRAVERE-2024TVT01224

PATIENT
  Age: 56 Year
  Sex: Female

DRUGS (10)
  1. FILSPARI [Suspect]
     Active Substance: SPARSENTAN
     Indication: IgA nephropathy
     Route: 048
     Dates: start: 20241007
  2. FILSPARI [Suspect]
     Active Substance: SPARSENTAN
     Route: 048
     Dates: end: 20241120
  3. TARPEYO [Concomitant]
     Active Substance: BUDESONIDE
  4. IRON [Concomitant]
     Active Substance: IRON
  5. VENLAFAXINE [Concomitant]
     Active Substance: VENLAFAXINE HYDROCHLORIDE
  6. BUPROPION [Concomitant]
     Active Substance: BUPROPION
  7. DOCUSATE SODIUM [Concomitant]
     Active Substance: DOCUSATE SODIUM
  8. OMEGA 3 [Concomitant]
     Active Substance: CAPSAICIN
  9. TRAZODONE [Concomitant]
     Active Substance: TRAZODONE HYDROCHLORIDE
  10. VITAMIN D3 [Concomitant]
     Active Substance: CHOLECALCIFEROL

REACTIONS (11)
  - Renal impairment [Unknown]
  - Hypotension [Recovered/Resolved]
  - Blood creatinine increased [Unknown]
  - Blood potassium increased [Unknown]
  - Blood glucose increased [Unknown]
  - Fatigue [Unknown]
  - Mobility decreased [Unknown]
  - Somnolence [Unknown]
  - Arthralgia [Unknown]
  - Glomerular filtration rate decreased [Unknown]
  - Asthenia [Unknown]
